FAERS Safety Report 9687856 (Version 1)
Quarter: 2013Q4

REPORT INFORMATION
  Report Type: Spontaneous
  Country: JP (occurrence: JP)
  Receive Date: 20131114
  Receipt Date: 20131114
  Transmission Date: 20140711
  Serious: No
  Sender: FDA-Public Use
  Company Number: JP-JNJFOC-20131101395

PATIENT
  Sex: 0

DRUGS (3)
  1. DUROTEP MT [Suspect]
     Indication: CANCER PAIN
     Route: 062
  2. OXYCONTIN [Concomitant]
     Indication: CANCER PAIN
     Route: 048
  3. OXYCONTIN [Concomitant]
     Indication: CANCER PAIN
     Route: 048

REACTIONS (1)
  - Drug prescribing error [Unknown]
